FAERS Safety Report 9237032 (Version 1)
Quarter: 2013Q2

REPORT INFORMATION
  Report Type: Spontaneous
  Country: JP (occurrence: JP)
  Receive Date: 20130417
  Receipt Date: 20130417
  Transmission Date: 20140414
  Serious: Yes (Other)
  Sender: FDA-Public Use
  Company Number: JP-PFIZER INC-2013119194

PATIENT
  Age: 8 Decade
  Sex: Female

DRUGS (2)
  1. CELECOX [Suspect]
     Indication: BACK PAIN
     Dosage: 200 MG DAILY
     Route: 048
  2. CELECOX [Suspect]
     Dosage: UNK
     Route: 048

REACTIONS (2)
  - Rash [Recovered/Resolved]
  - Eyelid oedema [Recovered/Resolved]
